FAERS Safety Report 9066834 (Version 1)
Quarter: 2013Q1

REPORT INFORMATION
  Report Type: Report from Study
  Country: US (occurrence: US)
  Receive Date: 20130131
  Receipt Date: 20130131
  Transmission Date: 20140127
  Serious: No
  Sender: FDA-Public Use
  Company Number: US-ABBOTT-12P-163-1016113-00

PATIENT
  Age: 82 Year
  Sex: Male

DRUGS (24)
  1. HUMIRA [Suspect]
     Indication: CROHN^S DISEASE
     Dosage: LOADING DOSE
     Dates: start: 20120926, end: 20120926
  2. HUMIRA [Suspect]
     Dates: start: 20121010, end: 20121010
  3. HUMIRA [Suspect]
     Dates: start: 20121024
  4. INVITE MULTIVITAMIN AND MINERAL [Concomitant]
     Indication: EYE DISORDER
     Dosage: 2 TABLETS DAILY
  5. ATENOLOL [Concomitant]
     Indication: BLOOD PRESSURE
     Dosage: 1 DAILY
  6. AMLODIPINE BESYLATE [Concomitant]
     Indication: BLOOD PRESSURE
  7. FLUNISOLIDE [Concomitant]
     Indication: HYPERSENSITIVITY
     Dosage: 1 SPRAY IN EACH NOSTRIL AS NEEDED
     Route: 045
  8. GABAPENTIN [Concomitant]
     Indication: NERVE INJURY
     Route: 048
  9. MESALAMINE [Concomitant]
     Indication: GASTROINTESTINAL DISORDER
  10. MELOXICAM [Concomitant]
     Indication: PAIN
     Dosage: 1 TABLET DAILY
  11. AZATHIOPRINE [Concomitant]
     Indication: FUNCTIONAL GASTROINTESTINAL DISORDER
     Dosage: 2 TABLETS DAILY
  12. ERGOCALCIFEROL [Concomitant]
     Indication: VITAMIN SUPPLEMENTATION
  13. ERGOCALCIFEROL [Concomitant]
     Indication: BONE DISORDER
  14. TRAMADOL [Concomitant]
     Indication: PAIN
     Dosage: AS NEEDED
  15. OMEPRAZOLE [Concomitant]
     Indication: GASTROOESOPHAGEAL REFLUX DISEASE
  16. CALCIUM [Concomitant]
     Indication: MINERAL SUPPLEMENTATION
  17. DIPHENOXYLATE [Concomitant]
     Indication: DIARRHOEA
     Dosage: AS NEEDED
  18. ALBUT/IPRATROP NEBULIZER [Concomitant]
     Indication: RESPIRATORY TRACT CONGESTION
  19. ALBUT/IPRATROP NEBULIZER [Concomitant]
     Indication: DYSPNOEA
  20. MEMANTINE HCL [Concomitant]
     Indication: MEMORY IMPAIRMENT
     Dosage: 1 DAILY
  21. OXYBUTYNIN [Concomitant]
     Indication: PRODUCT USED FOR UNKNOWN INDICATION
  22. RECLAST [Concomitant]
     Indication: BONE DISORDER
  23. CYCLOBENZAPRINE HCL [Concomitant]
     Indication: MUSCLE SPASMS
     Dosage: AS NEEDED
  24. LOPERAMIDE [Concomitant]
     Indication: DIARRHOEA
     Dosage: AFTER EACH LOOSE STOOL

REACTIONS (2)
  - Injection site pain [Recovered/Resolved]
  - Dermal cyst [Recovered/Resolved]
